FAERS Safety Report 9355777 (Version 2)
Quarter: 2013Q3

REPORT INFORMATION
  Report Type: Spontaneous
  Country: US (occurrence: US)
  Receive Date: 20130619
  Receipt Date: 20130812
  Transmission Date: 20140515
  Serious: Yes (Death, Hospitalization, Other)
  Sender: FDA-Public Use
  Company Number: US-INCYTE CORPORATION-2013IN001245

PATIENT
  Sex: Male
  Weight: 94.8 kg

DRUGS (3)
  1. JAKAFI [Suspect]
     Indication: MYELOFIBROSIS
     Dosage: NOT SPECIFIED
     Route: 048
     Dates: start: 20121217
  2. BUSULFAN [Concomitant]
     Dosage: UNK
     Dates: start: 20130219
  3. CYCLOPHOSPHAMIDE [Concomitant]
     Dosage: UNK
     Dates: start: 20130219

REACTIONS (4)
  - Graft versus host disease [Fatal]
  - Hepatic failure [Fatal]
  - Jaundice [Not Recovered/Not Resolved]
  - Stem cell transplant [Not Recovered/Not Resolved]
